FAERS Safety Report 25717160 (Version 1)
Quarter: 2025Q3

REPORT INFORMATION
  Report Type: Spontaneous
  Country: EU (occurrence: EU)
  Receive Date: 20250822
  Receipt Date: 20250822
  Transmission Date: 20251021
  Serious: Yes (Other)
  Sender: The J.Molner Company
  Company Number: EU-THE J. MOLNER COMPANY-202508000041

PATIENT

DRUGS (3)
  1. LIDOCAINE HYDROCHLORIDE [Suspect]
     Active Substance: LIDOCAINE HYDROCHLORIDE
     Indication: Anaesthesia
  2. BUPIVACAINE [Suspect]
     Active Substance: BUPIVACAINE
     Indication: Anaesthesia
  3. HYALURONIDASE [Concomitant]
     Active Substance: HYALURONIDASE
     Indication: Surgery

REACTIONS (4)
  - Vitreous haemorrhage [Recovered/Resolved]
  - Open globe injury [Unknown]
  - Macular ischaemia [Not Recovered/Not Resolved]
  - Ocular procedural complication [Unknown]
